FAERS Safety Report 4504063-4 (Version None)
Quarter: 2004Q4

REPORT INFORMATION
  Report Type: 
  Country: None (occurrence: None)
  Receive Date: 20041115
  Receipt Date: 20041103
  Transmission Date: 20050328
  Serious: Yes (Hospitalization)
  Sender: FDA-Public Use
  Company Number: 2004087860

PATIENT
  Sex: Female
  Weight: 73.4827 kg

DRUGS (2)
  1. ROGAINE [Suspect]
     Indication: HYPOTRICHOSIS
     Dosage: 1 ML BID, TOPICAL
     Route: 061
     Dates: start: 20000101, end: 20041001
  2. ANTINEOPLASTIC AGENTS (ANTINEOPLASTIC AGENTS) [Suspect]
     Indication: CARCINOMA
     Dates: start: 20040101

REACTIONS (3)
  - BLADDER CANCER [None]
  - BLOOD PRESSURE INADEQUATELY CONTROLLED [None]
  - LUNG NEOPLASM MALIGNANT [None]
